FAERS Safety Report 11217926 (Version 1)
Quarter: 2015Q2

REPORT INFORMATION
  Report Type: Spontaneous
  Country: US (occurrence: None)
  Receive Date: 20150624
  Receipt Date: 20150624
  Transmission Date: 20150821
  Serious: No
  Sender: FDA-Public Use
  Company Number: None

PATIENT
  Age: 59 Year
  Sex: Male
  Weight: 73 kg

DRUGS (4)
  1. VALACYCLOVIR [Concomitant]
     Active Substance: VALACYCLOVIR HYDROCHLORIDE
  2. TRIUMEQ [Suspect]
     Active Substance: ABACAVIR SULFATE\DOLUTEGRAVIR SODIUM\LAMIVUDINE
     Indication: HIV INFECTION
     Route: 048
  3. FLONASE [Concomitant]
     Active Substance: FLUTICASONE PROPIONATE
  4. TESTIM 1% GEL [Concomitant]

REACTIONS (7)
  - Diarrhoea [None]
  - Abdominal discomfort [None]
  - Muscle spasms [None]
  - Abdominal distension [None]
  - Abnormal faeces [None]
  - Flatulence [None]
  - Product substitution issue [None]

NARRATIVE: CASE EVENT DATE: 20140107
